FAERS Safety Report 4542380-2 (Version None)
Quarter: 2004Q4

REPORT INFORMATION
  Report Type: 
  Country: None (occurrence: None)
  Receive Date: 20041229
  Receipt Date: 20041220
  Transmission Date: 20050328
  Serious: Yes (Death, Hospitalization)
  Sender: FDA-Public Use
  Company Number: 04-12-1727

PATIENT
  Age: 49 Year
  Sex: Male

DRUGS (4)
  1. CLOZAPINE [Suspect]
     Indication: SCHIZOPHRENIA
     Dosage: 800MG QD ORAL
     Route: 048
  2. GEODON [Concomitant]
  3. ABILIFY [Concomitant]
  4. HALDOL [Concomitant]

REACTIONS (5)
  - AGGRESSION [None]
  - DIARRHOEA [None]
  - NEUROLEPTIC MALIGNANT SYNDROME [None]
  - RENAL CELL CARCINOMA STAGE UNSPECIFIED [None]
  - RESPIRATORY FAILURE [None]
